FAERS Safety Report 4686351-4 (Version None)
Quarter: 2005Q2

REPORT INFORMATION
  Report Type: 
  Country: None (occurrence: None)
  Receive Date: 20050606
  Receipt Date: 20050524
  Transmission Date: 20051028
  Serious: Yes (Other)
  Sender: FDA-Public Use
  Company Number: 2005079174

PATIENT
  Age: 68 Year
  Sex: Male
  Weight: 97.5234 kg

DRUGS (3)
  1. LIPITOR [Suspect]
     Indication: HYPERTENSION
     Dosage: 10 (10 MG 1 IN 1 D) ORAL
     Route: 048
     Dates: start: 19970101
  2. AVANDIA (ROSGLITAZONE) [Concomitant]
  3. PRINIVIL [Concomitant]

REACTIONS (1)
  - ARTHROPATHY [None]
